FAERS Safety Report 4497615-1 (Version None)
Quarter: 2004Q4

REPORT INFORMATION
  Report Type: 
  Country: None (occurrence: None)
  Receive Date: 20041105
  Receipt Date: 20041018
  Transmission Date: 20050328
  Serious: Yes (Hospitalization, Other)
  Sender: FDA-Public Use
  Company Number: US-JNJFOC-20041007173

PATIENT
  Sex: Male
  Weight: 3.76 kg

DRUGS (1)
  1. ORTHO TRI-CYCLEN LO [Suspect]

REACTIONS (5)
  - CEREBRAL ARTERY OCCLUSION [None]
  - CONVULSION [None]
  - DEVELOPMENTAL DELAY [None]
  - DRUG EXPOSURE DURING PREGNANCY [None]
  - NEONATAL APNOEIC ATTACK [None]
